FAERS Safety Report 11155562 (Version 1)
Quarter: 2015Q2

REPORT INFORMATION
  Report Type: Spontaneous
  Country: US (occurrence: None)
  Receive Date: 20150529
  Receipt Date: 20150529
  Transmission Date: 20150821
  Serious: Yes (Hospitalization, Other)
  Sender: FDA-Public Use
  Company Number: None

PATIENT
  Age: 68 Year
  Sex: Female
  Weight: 80.29 kg

DRUGS (1)
  1. XELODA [Suspect]
     Active Substance: CAPECITABINE
     Indication: COLON CANCER
     Dosage: 3 PO BID X 14 DAYS, OFF 7 DAYS
     Route: 048
     Dates: start: 20150504

REACTIONS (4)
  - International normalised ratio increased [None]
  - Dyspnoea [None]
  - Pain in jaw [None]
  - Fatigue [None]

NARRATIVE: CASE EVENT DATE: 20150522
